FAERS Safety Report 8607030-4 (Version None)
Quarter: 2012Q3

REPORT INFORMATION
  Report Type: 
  Country: None (occurrence: None)
  Receive Date: 20120821
  Receipt Date: 20120815
  Transmission Date: 20120928
  Serious: Yes (Other)
  Sender: FDA-Public Use
  Company Number: NL-AMGEN-NLDSP2012051696

PATIENT
  Age: 45 Year
  Sex: Female

DRUGS (11)
  1. METOCLOPRAMIDE [Concomitant]
  2. PROLIA [Suspect]
     Indication: PRODUCT USED FOR UNKNOWN INDICATION
  3. CIPROFLOXACIN [Concomitant]
  4. DICLOFENAC [Concomitant]
  5. APREPITANT [Concomitant]
  6. METAMUCIL                          /00029101/ [Concomitant]
  7. DEXAMETHASONE [Concomitant]
  8. PANTOPRAZOLE [Concomitant]
  9. NEULASTA [Suspect]
     Indication: CHEMOTHERAPY
     Dosage: 6 MG, Q3WK
     Route: 058
     Dates: start: 20120725
  10. CALCI CHEW D3 [Concomitant]
  11. ANTINEOPLASTIC AGENTS [Concomitant]
     Indication: BREAST CANCER

REACTIONS (6)
  - EAR PAIN [None]
  - LOCAL SWELLING [None]
  - MUSCULAR WEAKNESS [None]
  - PAIN IN JAW [None]
  - HEADACHE [None]
  - SENSE OF OPPRESSION [None]
